FAERS Safety Report 9384045 (Version 1)
Quarter: 2013Q3

REPORT INFORMATION
  Report Type: Spontaneous
  Country: IT (occurrence: IT)
  Receive Date: 20130705
  Receipt Date: 20130705
  Transmission Date: 20140515
  Serious: Yes (Death)
  Sender: FDA-Public Use
  Company Number: IT-JNJFOC-20130617777

PATIENT
  Sex: 0

DRUGS (6)
  1. DOXORUBICIN [Suspect]
     Indication: NEPHROBLASTOMA
     Route: 042
  2. VINCRISTINE [Suspect]
     Indication: NEPHROBLASTOMA
     Dosage: 4-WEEK TREATMENT BLOCK, TO BE REPEATED (1 TO 3 TIMES)
     Route: 050
  3. ACTINOMYCIN D [Suspect]
     Indication: NEPHROBLASTOMA
     Dosage: 4-WEEK TREATMENT BLOCK, TO BE REPEATED (1 TO 3 TIMES)
     Route: 065
  4. RADIOTHERAPY [Suspect]
     Indication: NEPHROBLASTOMA
     Route: 065
  5. IFOSFAMIDE [Suspect]
     Indication: NEPHROBLASTOMA
     Route: 065
  6. CARBOPLATIN [Suspect]
     Indication: NEPHROBLASTOMA
     Route: 065

REACTIONS (2)
  - Venoocclusive disease [Fatal]
  - Off label use [Unknown]
